FAERS Safety Report 8015962-3 (Version None)
Quarter: 2011Q4

REPORT INFORMATION
  Report Type: 
  Country: None (occurrence: None)
  Receive Date: 20111230
  Receipt Date: 20111219
  Transmission Date: 20120403
  Serious: Yes (Hospitalization)
  Sender: FDA-Public Use
  Company Number: FR-JNJFOC-20111208788

PATIENT
  Age: 52 Year
  Sex: Male

DRUGS (10)
  1. ORENCIA [Suspect]
     Indication: RHEUMATOID ARTHRITIS
     Route: 042
     Dates: start: 20080101, end: 20080801
  2. PREDNISONE TAB [Concomitant]
  3. ANTIDEPRESSANTS [Concomitant]
  4. REMICADE [Suspect]
     Indication: RHEUMATOID ARTHRITIS
     Dosage: 500 MG, THEN 600 MG, THEN 700 MG; ALSO NOTED AS 260 MG EVERY 8 WEEKS
     Route: 042
     Dates: start: 20090701, end: 20110701
  5. ACTEMRA [Suspect]
     Indication: RHEUMATOID ARTHRITIS
     Dates: start: 20080801, end: 20090601
  6. METHOTREXATE SODIUM [Suspect]
     Indication: RHEUMATOID ARTHRITIS
     Route: 058
     Dates: start: 20100801
  7. CIMZIA [Suspect]
     Indication: RHEUMATOID ARTHRITIS
     Dosage: Q 15 DAYS
     Route: 048
     Dates: end: 20110901
  8. CIMZIA [Suspect]
     Dosage: SC, 400 MG AT DAY 0, 15 AND 30, THEN 200 MG, ORAL,  EVERY 15 DAYS
     Route: 048
     Dates: start: 20110701
  9. NON STEROIDAL ANTI-INFLAMMATORY DRUGS [Concomitant]
  10. BISPHOSPHONATES [Concomitant]

REACTIONS (5)
  - EXTRADURAL ABSCESS [None]
  - INTERVERTEBRAL DISCITIS [None]
  - PSOAS ABSCESS [None]
  - SEPSIS [None]
  - DIABETES MELLITUS [None]
